FAERS Safety Report 25174067 (Version 1)
Quarter: 2025Q2

REPORT INFORMATION
  Report Type: Spontaneous
  Country: US (occurrence: US)
  Receive Date: 20250408
  Receipt Date: 20250408
  Transmission Date: 20250717
  Serious: No
  Sender: SANOFI AVENTIS
  Company Number: US-SA-2025SA099396

PATIENT
  Age: 78 Year
  Sex: Male
  Weight: 65.91 kg

DRUGS (9)
  1. DUPIXENT [Suspect]
     Active Substance: DUPILUMAB
     Indication: Product used for unknown indication
     Dosage: 300 MG, QOW
     Route: 058
  2. GLYCINE [Concomitant]
     Active Substance: GLYCINE
  3. ARGININE [Concomitant]
     Active Substance: ARGININE
  4. LYSINE [Concomitant]
     Active Substance: LYSINE
  5. MIRALAX [Concomitant]
     Active Substance: POLYETHYLENE GLYCOL 3350
  6. CETIRIZINE HCL [Concomitant]
     Active Substance: CETIRIZINE HYDROCHLORIDE
  7. MINERALS\VITAMINS [Concomitant]
     Active Substance: MINERALS\VITAMINS
  8. VITAMINS [Concomitant]
     Active Substance: VITAMINS
  9. TESTOSTERONE [Concomitant]
     Active Substance: TESTOSTERONE

REACTIONS (6)
  - Condition aggravated [Unknown]
  - Asthma [Unknown]
  - Pain [Unknown]
  - Nausea [Unknown]
  - Dizziness [Unknown]
  - Rash [Unknown]

NARRATIVE: CASE EVENT DATE: 20250101
